FAERS Safety Report 17717281 (Version 1)
Quarter: 2020Q2

REPORT INFORMATION
  Report Type: Spontaneous
  Country: US (occurrence: US)
  Receive Date: 20200428
  Receipt Date: 20200428
  Transmission Date: 20200714
  Serious: No
  Sender: FDA-Public Use
  Company Number: US-MYLANLABS-2020M1041196

PATIENT
  Sex: Female
  Weight: 84 kg

DRUGS (4)
  1. LIDOCAINE PATCH [Suspect]
     Active Substance: LIDOCAINE
     Indication: ARTHRALGIA
  2. LIDOCAINE PATCH [Suspect]
     Active Substance: LIDOCAINE
     Indication: BACK PAIN
  3. LIDOCAINE PATCH [Suspect]
     Active Substance: LIDOCAINE
     Indication: SCIATICA
  4. LIDOCAINE PATCH [Suspect]
     Active Substance: LIDOCAINE
     Indication: PAIN
     Dosage: UNKNOWN
     Route: 003

REACTIONS (6)
  - Product quality issue [Not Recovered/Not Resolved]
  - Application site rash [Unknown]
  - Skin irritation [Unknown]
  - Off label use [Unknown]
  - Application site mass [Unknown]
  - Product adhesion issue [Not Recovered/Not Resolved]
